FAERS Safety Report 17366509 (Version 7)
Quarter: 2020Q3

REPORT INFORMATION
  Report Type: Spontaneous
  Country: US (occurrence: US)
  Receive Date: 20200204
  Receipt Date: 20200727
  Transmission Date: 20201102
  Serious: No
  Sender: FDA-Public Use
  Company Number: US-PFIZER INC-2020045056

PATIENT
  Age: 42 Year
  Sex: Female
  Weight: 46.71 kg

DRUGS (4)
  1. NARDIL [Suspect]
     Active Substance: PHENELZINE SULFATE
     Indication: DEPRESSION
     Dosage: 3 DF, DAILY
     Dates: start: 1989
  2. LITHIUM. [Concomitant]
     Active Substance: LITHIUM
     Indication: MOOD ALTERED
     Dosage: 600 MG, DAILY
     Route: 048
  3. LITHOBID [Concomitant]
     Active Substance: LITHIUM CARBONATE
     Dosage: UNK
     Dates: start: 198907
  4. NARDIL [Suspect]
     Active Substance: PHENELZINE SULFATE
     Dosage: 45 MG, DAILY
     Dates: start: 198910

REACTIONS (7)
  - Abdominal discomfort [Recovered/Resolved]
  - Constipation [Recovered/Resolved]
  - Nervousness [Unknown]
  - Paraesthesia [Unknown]
  - Abdominal pain [Unknown]
  - Abdominal distension [Unknown]
  - Feeling abnormal [Unknown]

NARRATIVE: CASE EVENT DATE: 1989
